FAERS Safety Report 6978768-X (Version None)
Quarter: 2010Q3

REPORT INFORMATION
  Report Type: 
  Country: None (occurrence: None)
  Receive Date: 20100913
  Receipt Date: 20100906
  Transmission Date: 20110219
  Serious: Yes (Other)
  Sender: FDA-Public Use
  Company Number: ES-ROCHE-726057

PATIENT
  Age: 55 Year
  Sex: Female

DRUGS (1)
  1. BONIVA [Suspect]
     Indication: OSTEOPOROSIS
     Route: 048
     Dates: start: 20100901

REACTIONS (3)
  - BACK PAIN [None]
  - HEADACHE [None]
  - ORAL HERPES [None]
